FAERS Safety Report 18209404 (Version 1)
Quarter: 2020Q3

REPORT INFORMATION
  Report Type: Spontaneous
  Country: FR (occurrence: FR)
  Receive Date: 20200828
  Receipt Date: 20200828
  Transmission Date: 20201103
  Serious: Yes (Other)
  Sender: FDA-Public Use
  Company Number: FR-PFIZER INC-2020333103

PATIENT
  Age: 84 Year
  Sex: Female

DRUGS (5)
  1. LANSOPRAZOLE. [Suspect]
     Active Substance: LANSOPRAZOLE
     Indication: GASTRITIS
     Dosage: 15 MG, 1X/DAY, QD
     Route: 048
     Dates: start: 20200610, end: 20200614
  2. EUPANTOL [Suspect]
     Active Substance: PANTOPRAZOLE SODIUM
     Indication: GASTRITIS
     Dosage: 20 MG, 1X/DAY, QD
     Route: 048
     Dates: start: 20200615, end: 20200622
  3. AZATHIOPRINE. [Suspect]
     Active Substance: AZATHIOPRINE
     Indication: GIANT CELL ARTERITIS
     Dosage: 25 MG, 1X/DAY, QD
     Route: 048
     Dates: start: 2012, end: 20200615
  4. AMIODARONE HYDROCHLORIDE. [Suspect]
     Active Substance: AMIODARONE HYDROCHLORIDE
     Indication: ATRIAL FIBRILLATION
     Dosage: UNK, 1X/DAY, QD
     Route: 048
     Dates: start: 20200519, end: 20200623
  5. ESCITALOPRAM OXALATE. [Suspect]
     Active Substance: ESCITALOPRAM OXALATE
     Dosage: 5 MG, DAILY
     Route: 048
     Dates: start: 20200610

REACTIONS (1)
  - Thrombocytopenia [Recovering/Resolving]

NARRATIVE: CASE EVENT DATE: 20200611
